FAERS Safety Report 20947010 (Version 1)
Quarter: 2022Q2

REPORT INFORMATION
  Report Type: Report from Study
  Country: US (occurrence: US)
  Receive Date: 20220610
  Receipt Date: 20220610
  Transmission Date: 20220720
  Serious: Yes (Other)
  Sender: FDA-Public Use
  Company Number: US-SUNOVION-2022SUN001698

PATIENT
  Age: 67 Year
  Sex: Female

DRUGS (1)
  1. KYNMOBI [Suspect]
     Active Substance: APOMORPHINE HYDROCHLORIDE
     Dosage: 10 MG
     Route: 060
     Dates: start: 20220531

REACTIONS (6)
  - Bradycardia [Unknown]
  - Blood pressure decreased [Unknown]
  - Dyskinesia [Unknown]
  - Nausea [Unknown]
  - Orthostatic hypotension [Unknown]
  - Vomiting [Unknown]

NARRATIVE: CASE EVENT DATE: 20220531
